FAERS Safety Report 11458992 (Version 1)
Quarter: 2015Q3

REPORT INFORMATION
  Report Type: Spontaneous
  Country: US (occurrence: US)
  Receive Date: 20150904
  Receipt Date: 20150904
  Transmission Date: 20151125
  Serious: Yes (Other)
  Sender: FDA-Public Use
  Company Number: US-TAKEDA-2014TUS005429

PATIENT

DRUGS (11)
  1. AMARYL [Concomitant]
     Active Substance: GLIMEPIRIDE
     Dosage: 2MG + 1 MG, UNK
     Dates: start: 20120204
  2. JANUVIA [Concomitant]
     Active Substance: SITAGLIPTIN PHOSPHATE
     Dosage: 100 MG, UNK
     Dates: start: 20100312, end: 20100401
  3. METFORMIN [Concomitant]
     Active Substance: METFORMIN HYDROCHLORIDE
     Dosage: 1000 MG, BID
     Dates: start: 20090616
  4. ACTOS [Suspect]
     Active Substance: PIOGLITAZONE HYDROCHLORIDE
     Indication: TYPE 2 DIABETES MELLITUS
     Dosage: UNK
     Route: 048
     Dates: start: 20030624, end: 20030821
  5. BYETTA [Concomitant]
     Active Substance: EXENATIDE
     Dosage: 5 MCG PEN, UNK
     Dates: start: 20100428
  6. INVOKANA [Concomitant]
     Active Substance: CANAGLIFLOZIN
     Indication: DIABETES MELLITUS
     Dosage: 300 MG, UNK
     Dates: start: 201403
  7. GLUCOTROL ER [Concomitant]
     Dosage: 10 MG, 24 HOUR
     Dates: start: 20110711, end: 20130821
  8. JANUVIA [Concomitant]
     Active Substance: SITAGLIPTIN PHOSPHATE
     Dosage: 100 MG, UNK
     Dates: start: 201403
  9. BYETTA [Concomitant]
     Active Substance: EXENATIDE
     Dosage: 5 MCG PEN, UNK
     Dates: start: 20120204
  10. JANUVIA [Concomitant]
     Active Substance: SITAGLIPTIN PHOSPHATE
     Dosage: 100 MG, UNK
     Dates: start: 20091215
  11. BYETTA [Concomitant]
     Active Substance: EXENATIDE
     Dosage: 5 MCG PEN, UNK
     Dates: start: 20090605, end: 20091215

REACTIONS (1)
  - Bladder cancer [Unknown]

NARRATIVE: CASE EVENT DATE: 20090608
